FAERS Safety Report 7116128-1 (Version None)
Quarter: 2010Q4

REPORT INFORMATION
  Report Type: 
  Country: None (occurrence: None)
  Receive Date: 20101122
  Receipt Date: 20101109
  Transmission Date: 20110411
  Serious: Yes (Hospitalization)
  Sender: FDA-Public Use
  Company Number: PHHY2010IT75676

PATIENT
  Age: 40 Year
  Sex: Female

DRUGS (6)
  1. CLOZAPINE [Suspect]
     Indication: SCHIZOPHRENIA, PARANOID TYPE
     Dosage: 25 MG, QD
     Route: 048
  2. CLOZAPINE [Suspect]
     Dosage: 300 MG, QD
     Route: 048
  3. CLOZAPINE [Suspect]
     Dosage: 100 MG, QD
  4. LORAZEPAM [Suspect]
     Indication: ANXIETY
     Dosage: 10 MG, UNK
  5. LORAZEPAM [Suspect]
     Indication: HYPNOTHERAPY
  6. HALOPERIDOL [Concomitant]
     Dosage: 4 MG, QD
     Route: 048

REACTIONS (11)
  - ANTIPSYCHOTIC DRUG LEVEL INCREASED [None]
  - BLOOD AMYLASE INCREASED [None]
  - BLOOD CALCIUM DECREASED [None]
  - BLOOD CHOLESTEROL INCREASED [None]
  - BLOOD TRIGLYCERIDES INCREASED [None]
  - C-REACTIVE PROTEIN INCREASED [None]
  - CHOLELITHIASIS [None]
  - HYPERGLYCAEMIA [None]
  - LIPASE INCREASED [None]
  - PANCREATIC ENZYMES INCREASED [None]
  - PANCREATITIS [None]
